FAERS Safety Report 18359213 (Version 1)
Quarter: 2020Q4

REPORT INFORMATION
  Report Type: Spontaneous
  Country: US (occurrence: US)
  Receive Date: 20201007
  Receipt Date: 20201007
  Transmission Date: 20210114
  Serious: Yes (Hospitalization)
  Sender: FDA-Public Use
  Company Number: None

PATIENT
  Sex: Female

DRUGS (1)
  1. MYLERAN [Suspect]
     Active Substance: BUSULFAN
     Indication: HAEMATOLOGICAL MALIGNANCY
     Dosage: FREQUENCY: EVERY 2 WEEKS
     Route: 048
     Dates: start: 20151215

REACTIONS (1)
  - Gastric ulcer haemorrhage [None]
